FAERS Safety Report 5133542-4 (Version None)
Quarter: 2006Q4

REPORT INFORMATION
  Report Type: 
  Country: None (occurrence: None)
  Receive Date: 20061024
  Receipt Date: 20061012
  Transmission Date: 20070319
  Serious: Yes (Other)
  Sender: FDA-Public Use
  Company Number: US-BAYER-200614652GDS

PATIENT
  Age: 52 Year
  Sex: Male

DRUGS (2)
  1. SORAFENIB [Suspect]
     Indication: METASTATIC RENAL CELL CARCINOMA
     Dosage: TOTAL DAILY DOSE: 800 MG
     Route: 048
  2. BEVACIZUMAB [Concomitant]
     Indication: METASTATIC RENAL CELL CARCINOMA

REACTIONS (3)
  - CONFUSIONAL STATE [None]
  - COORDINATION ABNORMAL [None]
  - TUMOUR HAEMORRHAGE [None]
